FAERS Safety Report 11009344 (Version 1)
Quarter: 2015Q2

REPORT INFORMATION
  Report Type: Spontaneous
  Country: US (occurrence: None)
  Receive Date: 20150409
  Receipt Date: 20150409
  Transmission Date: 20150821
  Serious: Yes (Other)
  Sender: FDA-Public Use
  Company Number: None

PATIENT
  Age: 51 Year
  Sex: Female
  Weight: 99.34 kg

DRUGS (1)
  1. SPRYCEL [Suspect]
     Active Substance: DASATINIB
     Indication: CHRONIC MYELOID LEUKAEMIA
     Dosage: STRENGTH:  100MG, DOSE FORM:  ORAL, FREQUENCY: DAILY, ROUTE: ORAL 047
     Route: 048
     Dates: start: 20150317

REACTIONS (4)
  - Headache [None]
  - Nausea [None]
  - Ocular hyperaemia [None]
  - Sinusitis [None]

NARRATIVE: CASE EVENT DATE: 20150327
